FAERS Safety Report 9405408 (Version 2)
Quarter: 2013Q3

REPORT INFORMATION
  Report Type: Spontaneous
  Country: ES (occurrence: ES)
  Receive Date: 20130715
  Receipt Date: 20130806
  Transmission Date: 20140515
  Serious: Yes (Hospitalization)
  Sender: FDA-Public Use
  Company Number: SYM-2013-06083

PATIENT
  Age: 63 Year
  Sex: Male

DRUGS (10)
  1. 5-FU [Suspect]
     Indication: COLORECTAL CANCER METASTATIC
     Route: 040
     Dates: start: 20130416, end: 20130416
  2. IRINOTECAN [Suspect]
     Indication: COLORECTAL CANCER METASTATIC
     Route: 041
     Dates: start: 20130416, end: 20130416
  3. LEUCOVORIN [Suspect]
     Indication: COLORECTAL CANCER METASTATIC
     Route: 041
     Dates: start: 20130416, end: 20130416
  4. AFLIBERCEPT [Suspect]
     Indication: COLORECTAL CANCER METASTATIC
     Route: 041
     Dates: start: 20130416, end: 20130416
  5. SPIRIVA [Concomitant]
  6. PLUSVENT (SERETIDE)(FLUTICASONE PROPIONATE, SALMETEROL XINAFOATE) [Concomitant]
  7. ENALAPRIL (ENALAPRIL)(ENALAPRIL) [Concomitant]
  8. G-CSF (GRANULOCYTE COLONY STIMULATING FACTOR)(GRANULOCYTE COLONY STIMULATING FACTOR) [Concomitant]
  9. METFORMIN HYDROCHLORIDE/SITAGLIPTIN PHOSPHATE (METFORMIN HYDROCHLORIDE W/SITAGLIPTIN)(METFORMIN HYDROCHLORIDE, SITAGLIPTIN) [Concomitant]
  10. AMARYL (GLIMEPIRIDE)(GLIMEPIRIDE) [Concomitant]

REACTIONS (1)
  - Thrombosis in device [None]
